FAERS Safety Report 8154192-1 (Version None)
Quarter: 2012Q1

REPORT INFORMATION
  Report Type: 
  Country: None (occurrence: None)
  Receive Date: 20120217
  Receipt Date: 20120217
  Transmission Date: 20120608
  Serious: Yes (Life-Threatening, Other)
  Sender: FDA-Public Use
  Company Number: None

PATIENT
  Sex: Female
  Weight: 45.3597 kg

DRUGS (3)
  1. AZITHROMYCIN [Suspect]
     Dosage: 1. 2 TABLETS, AND 1 TABLET  2 DAYS AZITHROMYCIN
     Dates: start: 20120126
  2. AZITHROMYCIN [Suspect]
     Dosage: 1. 2 TABLETS, AND 1 TABLET  2 DAYS AZITHROMYCIN
     Dates: start: 20120127
  3. GUAIFENESIN [Suspect]
     Dosage: 6 DOSES IN A 24HR.  2 DOSE A DAY TUSSIN SYRUP
     Dates: start: 20120127

REACTIONS (9)
  - COUGH [None]
  - ERYTHEMA [None]
  - ABDOMINAL PAIN [None]
  - SWELLING FACE [None]
  - LIP SWELLING [None]
  - PAIN IN EXTREMITY [None]
  - SWOLLEN TONGUE [None]
  - EYE PAIN [None]
  - PHARYNGEAL OEDEMA [None]
